FAERS Safety Report 13541534 (Version 3)
Quarter: 2017Q3

REPORT INFORMATION
  Report Type: Report from Study
  Country: US (occurrence: US)
  Receive Date: 20170512
  Receipt Date: 20170712
  Transmission Date: 20171127
  Serious: Yes (Death)
  Sender: FDA-Public Use
  Company Number: US-JNJFOC-20170330463

PATIENT
  Age: 72 Year
  Sex: Male

DRUGS (3)
  1. LASIX [Concomitant]
     Active Substance: FUROSEMIDE
  2. LORAZEPAM. [Concomitant]
     Active Substance: LORAZEPAM
  3. IMBRUVICA [Suspect]
     Active Substance: IBRUTINIB
     Indication: MANTLE CELL LYMPHOMA
     Route: 048
     Dates: start: 20160621

REACTIONS (5)
  - Cholelithiasis [Unknown]
  - Foreign body in respiratory tract [Unknown]
  - Product physical issue [Unknown]
  - Hepatic cirrhosis [Fatal]
  - Disease progression [Fatal]

NARRATIVE: CASE EVENT DATE: 20160805
